FAERS Safety Report 23826850 (Version 2)
Quarter: 2024Q3

REPORT INFORMATION
  Report Type: Spontaneous
  Country: JP (occurrence: JP)
  Receive Date: 20240507
  Receipt Date: 20240718
  Transmission Date: 20241017
  Serious: Yes (Hospitalization, Other)
  Sender: ELI LILLY AND CO
  Company Number: JP-NShinyaku-EVA202401188ZZLILLY

PATIENT
  Age: 40 Year
  Sex: Female
  Weight: 42.8 kg

DRUGS (12)
  1. TADALAFIL [Suspect]
     Active Substance: TADALAFIL
     Indication: Pulmonary arterial hypertension
     Dosage: UNKNOWN
     Route: 048
     Dates: start: 20230404
  2. BERAPROST SODIUM [Concomitant]
     Active Substance: BERAPROST SODIUM
     Indication: Pulmonary arterial hypertension
     Dosage: 60 UG, BID
     Route: 048
     Dates: start: 20130924, end: 20230424
  3. BERAPROST SODIUM [Concomitant]
     Active Substance: BERAPROST SODIUM
     Dosage: 180 UG, BID
     Route: 048
     Dates: start: 20230425
  4. EPOPROSTENOL [Concomitant]
     Active Substance: EPOPROSTENOL
     Indication: Pulmonary arterial hypertension
     Dosage: UNKNOWN
     Route: 041
  5. EPOPROSTENOL [Concomitant]
     Active Substance: EPOPROSTENOL
     Dosage: 0.4 NG/KG/MIN
     Route: 041
  6. TREPROSTINIL [Concomitant]
     Active Substance: TREPROSTINIL
     Indication: Pulmonary arterial hypertension
     Dosage: 18 UG, TID
     Route: 055
     Dates: start: 20230622, end: 20230628
  7. TREPROSTINIL [Concomitant]
     Active Substance: TREPROSTINIL
     Dosage: 36 UG, TID
     Route: 055
     Dates: start: 20230629, end: 20230703
  8. TREPROSTINIL [Concomitant]
     Active Substance: TREPROSTINIL
     Dosage: 54 UG, TID
     Route: 055
     Dates: start: 20230704
  9. REVATIO [Concomitant]
     Active Substance: SILDENAFIL CITRATE
     Indication: Pulmonary arterial hypertension
  10. ASPIRIN [Concomitant]
     Active Substance: ASPIRIN
     Indication: Thrombosis prophylaxis
     Dosage: 100 MG, DAILY
     Route: 048
     Dates: start: 20230130
  11. BUPIVACAINE HYDROCHLORIDE [Concomitant]
     Active Substance: BUPIVACAINE HYDROCHLORIDE
     Dosage: UNKNOWN, LUMBAR ANESTHESIA
     Route: 042
     Dates: start: 20230627, end: 20230627
  12. FENTANYL [Concomitant]
     Active Substance: FENTANYL\FENTANYL CITRATE
     Dosage: UNKNOWN, LUMBAR ANESTHESIA
     Dates: start: 20230627, end: 20230627

REACTIONS (4)
  - Placenta praevia [Unknown]
  - Premature baby [Unknown]
  - Diarrhoea [Recovering/Resolving]
  - Maternal exposure during pregnancy [Recovered/Resolved]
